FAERS Safety Report 7473367-8 (Version None)
Quarter: 2011Q2

REPORT INFORMATION
  Report Type: 
  Country: None (occurrence: None)
  Receive Date: 20110511
  Receipt Date: 20110427
  Transmission Date: 20111010
  Serious: Yes (Hospitalization)
  Sender: FDA-Public Use
  Company Number: JP-JNJFOC-20110312641

PATIENT
  Sex: Male
  Weight: 92 kg

DRUGS (10)
  1. REMICADE [Suspect]
     Route: 042
  2. REMICADE [Suspect]
     Indication: RHEUMATOID ARTHRITIS
     Route: 042
  3. TIENAM [Concomitant]
  4. CLARITH [Concomitant]
     Route: 048
  5. MUCODYNE [Concomitant]
     Route: 048
  6. CALONAL [Concomitant]
     Dosage: 6PAC DAILY
     Route: 048
  7. PERIACTIN [Concomitant]
     Route: 048
  8. LEVOFLOXACIN [Concomitant]
     Route: 048
  9. CHINESE MEDICATION [Concomitant]
  10. RHEUMATREX [Suspect]
     Indication: RHEUMATOID ARTHRITIS
     Route: 048

REACTIONS (1)
  - PNEUMONIA [None]
